FAERS Safety Report 6184400-8 (Version None)
Quarter: 2009Q2

REPORT INFORMATION
  Report Type: 
  Country: None (occurrence: None)
  Receive Date: 20090508
  Receipt Date: 20090430
  Transmission Date: 20091009
  Serious: Yes (Hospitalization)
  Sender: FDA-Public Use
  Company Number: B0568937A

PATIENT
  Sex: Female
  Weight: 59.1 kg

DRUGS (2)
  1. AVANDAMET [Suspect]
     Route: 048
     Dates: start: 20090113, end: 20090401
  2. IRBESARTAN [Concomitant]
     Indication: HYPERTENSION
     Dosage: 150MG PER DAY
     Route: 048

REACTIONS (6)
  - ARTERIOSCLEROSIS CORONARY ARTERY [None]
  - BUNDLE BRANCH BLOCK RIGHT [None]
  - CHEST PAIN [None]
  - SINUS ARRHYTHMIA [None]
  - SUPRAVENTRICULAR EXTRASYSTOLES [None]
  - SWELLING FACE [None]
